FAERS Safety Report 24531703 (Version 1)
Quarter: 2024Q4

REPORT INFORMATION
  Report Type: Report from Study
  Country: CA (occurrence: CA)
  Receive Date: 20241022
  Receipt Date: 20241022
  Transmission Date: 20250115
  Serious: No
  Sender: ROCHE
  Company Number: CA-ROCHE-3570869

PATIENT
  Sex: Male

DRUGS (3)
  1. PULMOZYME [Suspect]
     Active Substance: DORNASE ALFA
     Indication: Cystic fibrosis
     Dosage: 2.5 MG NEB INHALATION ONCE DAILY
     Route: 055
     Dates: start: 20150211, end: 202102
  2. PULMOZYME [Suspect]
     Active Substance: DORNASE ALFA
     Route: 055
  3. TRIKAFTA [Concomitant]
     Active Substance: ELEXACAFTOR\IVACAFTOR\TEZACAFTOR
     Indication: Cystic fibrosis

REACTIONS (2)
  - Intentional product misuse [Unknown]
  - Pulmonary congestion [Recovering/Resolving]
